FAERS Safety Report 9129661 (Version 1)
Quarter: 2013Q1

REPORT INFORMATION
  Report Type: Spontaneous
  Country: DE (occurrence: DE)
  Receive Date: 20130125
  Receipt Date: 20130125
  Transmission Date: 20140127
  Serious: Yes (Other)
  Sender: FDA-Public Use
  Company Number: DE-ROCHE-1183571

PATIENT
  Sex: Female

DRUGS (1)
  1. BONVIVA [Suspect]
     Indication: PRODUCT USED FOR UNKNOWN INDICATION
     Route: 065
     Dates: start: 2005

REACTIONS (3)
  - Fracture [Unknown]
  - Wrong technique in drug usage process [Unknown]
  - Drug ineffective [Unknown]
